FAERS Safety Report 9319981 (Version 4)
Quarter: 2013Q3

REPORT INFORMATION
  Report Type: Spontaneous
  Country: GB (occurrence: GB)
  Receive Date: 20130530
  Receipt Date: 20130911
  Transmission Date: 20140515
  Serious: Yes (Other)
  Sender: FDA-Public Use
  Company Number: GB-VERTEX PHARMACEUTICALS INC-2013-006566

PATIENT
  Sex: Male

DRUGS (3)
  1. INCIVO [Suspect]
     Indication: HEPATITIS C
     Dosage: 750 MG, TID
     Route: 048
  2. PEGYLATED INTERFERON [Suspect]
     Indication: HEPATITIS C
     Dosage: DOSAGE FORM: UNSPECIFIED
     Route: 065
  3. RIBAVIRIN [Concomitant]
     Indication: PRODUCT USED FOR UNKNOWN INDICATION
     Dosage: DOSAGE FORM: UNSPECIFIED
     Route: 065

REACTIONS (1)
  - Depression [Unknown]
